FAERS Safety Report 6656559-7 (Version None)
Quarter: 2010Q1

REPORT INFORMATION
  Report Type: 
  Country: None (occurrence: None)
  Receive Date: 20100329
  Receipt Date: 20100317
  Transmission Date: 20100710
  Serious: Yes (Death)
  Sender: FDA-Public Use
  Company Number: TR-GENZYME-CLOF-1000899

PATIENT
  Age: 10 Year
  Sex: Female

DRUGS (8)
  1. EVOLTRA [Suspect]
     Indication: ACUTE LEUKAEMIA
     Dosage: 40 MG/M2, QDX5
     Route: 042
  2. EVOLTRA [Suspect]
     Dosage: 40 MG/M2, QD X 4
     Route: 042
  3. ETOPOSIDE [Suspect]
     Indication: ACUTE LYMPHOCYTIC LEUKAEMIA
     Dosage: 100 MG/M2, QDX5
     Route: 042
  4. ETOPOSIDE [Suspect]
     Dosage: 100 MG/M2, QD X4
     Route: 042
  5. CYCLOPHOSPHAMIDE [Suspect]
     Indication: ACUTE LYMPHOCYTIC LEUKAEMIA
     Dosage: 340 MG/M2, QDX5
     Route: 042
  6. CYCLOPHOSPHAMIDE [Suspect]
     Dosage: 340 MG/M2, QD X4
     Route: 042
  7. METHYLPREDNISOLONE [Concomitant]
     Indication: PROPHYLAXIS
     Dosage: 5 MG/KG, QDX5
     Route: 042
  8. METHYLPREDNISOLONE [Concomitant]
     Dosage: 5 MG/KG, QD X4
     Route: 042

REACTIONS (1)
  - CAPILLARY LEAK SYNDROME [None]
